FAERS Safety Report 5601926-3 (Version None)
Quarter: 2008Q1

REPORT INFORMATION
  Report Type: 
  Country: None (occurrence: None)
  Receive Date: 20080125
  Receipt Date: 20080118
  Transmission Date: 20080703
  Serious: Yes (Death, Hospitalization)
  Sender: FDA-Public Use
  Company Number: US-BAYER-200714711NA

PATIENT
  Sex: Female

DRUGS (1)
  1. YAZ [Suspect]
     Route: 048

REACTIONS (2)
  - ARRHYTHMIA [None]
  - ROAD TRAFFIC ACCIDENT [None]
